FAERS Safety Report 12000801 (Version 2)
Quarter: 2016Q1

REPORT INFORMATION
  Report Type: Report from Study
  Country: FR (occurrence: FR)
  Receive Date: 20160204
  Receipt Date: 20160302
  Transmission Date: 20160526
  Serious: Yes (Hospitalization)
  Sender: FDA-Public Use
  Company Number: FR-ROCHE-1699807

PATIENT
  Age: 65 Year

DRUGS (7)
  1. PACLITAXEL. [Suspect]
     Active Substance: PACLITAXEL
     Indication: HER-2 POSITIVE BREAST CANCER
     Dosage: 140 MG. DATE OF LAST DOSE PRIOR TO SAE: 13/JAN/2016. DAY 1, 8 AND 15 EVERY 4 WEEKS AND FO MORE THEN
     Route: 042
     Dates: start: 20150917
  2. TRASTUZUMAB [Suspect]
     Active Substance: TRASTUZUMAB
     Dosage: MAINATINANCE DOSE. 6 MG/KG. DATE OF LAST DOSE PRIOR TO SAE: 31/DEC/2015.
     Route: 042
  3. PERTUZUMAB [Suspect]
     Active Substance: PERTUZUMAB
     Indication: HER-2 POSITIVE BREAST CANCER
     Dosage: DATE OF LAST DOSE PRIOR TO SAE: 31/DEC/2015.
     Route: 042
     Dates: start: 20150916
  4. LYRICA [Concomitant]
     Active Substance: PREGABALIN
     Route: 048
     Dates: start: 20151119
  5. PERTUZUMAB [Suspect]
     Active Substance: PERTUZUMAB
     Route: 042
  6. TRASTUZUMAB [Suspect]
     Active Substance: TRASTUZUMAB
     Indication: HER-2 POSITIVE BREAST CANCER
     Dosage: 6 MG/KG. DATE OF LAST DOSE PRIOR TO SAE: 31/DEC/2015.
     Route: 042
     Dates: start: 20150916
  7. SEROPLEX [Concomitant]
     Active Substance: ESCITALOPRAM OXALATE
     Route: 048

REACTIONS (1)
  - Transient ischaemic attack [Recovered/Resolved]

NARRATIVE: CASE EVENT DATE: 20160121
